FAERS Safety Report 7080737-9 (Version None)
Quarter: 2010Q4

REPORT INFORMATION
  Report Type: 
  Country: None (occurrence: None)
  Receive Date: 20101103
  Receipt Date: 20101027
  Transmission Date: 20110411
  Serious: Yes (Other)
  Sender: FDA-Public Use
  Company Number: US-JNJCH-2010024876

PATIENT
  Age: 40 Year
  Sex: Female

DRUGS (1)
  1. BENADRYL [Suspect]
     Indication: RHINORRHOEA
     Dosage: TEXT:ONE KAPGEL ONCE
     Route: 048
     Dates: start: 20101018, end: 20101018

REACTIONS (5)
  - COUGH [None]
  - DYSPNOEA [None]
  - PRODUCT QUALITY ISSUE [None]
  - SWOLLEN TONGUE [None]
  - THROAT TIGHTNESS [None]
